FAERS Safety Report 8986689 (Version 1)
Quarter: 2012Q4

REPORT INFORMATION
  Report Type: Spontaneous
  Country: US (occurrence: None)
  Receive Date: 20121109
  Receipt Date: 20121109
  Transmission Date: 20130627
  Serious: Yes (Hospitalization, Other)
  Sender: FDA-Public Use
  Company Number: 141035

PATIENT
  Age: 12 Year
  Sex: Female

DRUGS (1)
  1. DAUNORUBICIN HCL [Suspect]
     Indication: ACUTE LYMPHATIC LEUKEMIA
     Route: 042
     Dates: start: 20120730, end: 20120806

REACTIONS (8)
  - Oedema peripheral [None]
  - Encephalopathy [None]
  - Bacteraemia [None]
  - Localised oedema [None]
  - Haemoglobin decreased [None]
  - Gait disturbance [None]
  - Asthenia [None]
  - Large intestinal ulcer [None]
